FAERS Safety Report 4493187-6 (Version None)
Quarter: 2004Q4

REPORT INFORMATION
  Report Type: 
  Country: None (occurrence: None)
  Receive Date: 20041104
  Receipt Date: 20041101
  Transmission Date: 20050328
  Serious: Yes (Death, Other)
  Sender: FDA-Public Use
  Company Number: PHBS2004IN14703

PATIENT
  Age: 26 Year
  Sex: Male
  Weight: 60 kg

DRUGS (6)
  1. SANDIMMUNE [Suspect]
     Indication: RENAL TRANSPLANT
     Dosage: 8 MG/KG/DAY
     Route: 048
  2. SANDIMMUNE [Suspect]
     Dosage: 6 MG/KG/DAY
     Route: 048
  3. PENTAZOCINE [Concomitant]
     Indication: ABDOMINAL PAIN
     Dosage: 30 MG, UNK
  4. MYFORTIC [Concomitant]
     Dosage: 1.44 G/DAY
     Route: 048
  5. SIMULECT [Concomitant]
     Dosage: 20 MG, ONCE/SINGLE
     Route: 065
  6. SIMULECT [Concomitant]
     Dosage: 20 MG, ONCE/SINGLE
     Route: 065

REACTIONS (11)
  - ABDOMINAL PAIN [None]
  - ANURIA [None]
  - BLOOD BILIRUBIN INCREASED [None]
  - CARDIAC ARREST [None]
  - DEATH [None]
  - DRUG LEVEL INCREASED [None]
  - FLUID IMBALANCE [None]
  - GASTROINTESTINAL HAEMORRHAGE [None]
  - HEPATIC ENZYME INCREASED [None]
  - HEPATIC FUNCTION ABNORMAL [None]
  - INTESTINAL PERFORATION [None]
